FAERS Safety Report 4975754-6 (Version None)
Quarter: 2006Q2

REPORT INFORMATION
  Report Type: 
  Country: None (occurrence: None)
  Receive Date: 20060411
  Receipt Date: 20060323
  Transmission Date: 20061013
  Serious: Yes (Hospitalization)
  Sender: FDA-Public Use
  Company Number: US200603004885

PATIENT
  Age: 49 Year
  Sex: Male

DRUGS (3)
  1. FORTEO [Suspect]
     Indication: OSTEOPOROSIS
     Dosage: 20 U, DAILY (1/D); 20 UG, DAILY (1/D),
     Dates: start: 20050506, end: 20050101
  2. FORTEO [Suspect]
     Indication: OSTEOPOROSIS
     Dosage: 20 U, DAILY (1/D); 20 UG, DAILY (1/D),
     Dates: start: 20060101
  3. FORTEO [Concomitant]

REACTIONS (4)
  - CHOLECYSTITIS CHRONIC [None]
  - NERVE INJURY [None]
  - PANCREATIC PSEUDOCYST [None]
  - PANCREATITIS [None]
